FAERS Safety Report 4630338-4 (Version None)
Quarter: 2005Q2

REPORT INFORMATION
  Report Type: 
  Country: None (occurrence: None)
  Receive Date: 20050408
  Receipt Date: 20050223
  Transmission Date: 20051028
  Serious: Yes (Hospitalization)
  Sender: FDA-Public Use
  Company Number: FR-BRISTOL-MYERS SQUIBB COMPANY-12873311

PATIENT
  Age: 56 Year
  Sex: Female

DRUGS (2)
  1. COAPROVEL [Suspect]
     Indication: HYPERTENSION
     Route: 048
     Dates: end: 20031027
  2. KETEK [Suspect]
     Indication: SINUSITIS
     Dosage: 2 TABS/DAY
     Dates: start: 20030826, end: 20030903

REACTIONS (3)
  - EYELID PTOSIS [None]
  - HEADACHE [None]
  - MYASTHENIC SYNDROME [None]
